FAERS Safety Report 4997969-3 (Version None)
Quarter: 2006Q2

REPORT INFORMATION
  Report Type: 
  Country: None (occurrence: None)
  Receive Date: 20060510
  Receipt Date: 20010310
  Transmission Date: 20061013
  Serious: Yes (Death, Hospitalization)
  Sender: FDA-Public Use
  Company Number: FDA12345

PATIENT
  Age: 49 Year
  Weight: 64 kg

DRUGS (2)
  1. SIMULECT [Suspect]
     Indication: HEART TRANSPLANT
     Dosage: 10 MG, QD
     Route: 042
     Dates: start: 20000621, end: 20010522
  2. FTY 720 [Suspect]
     Dosage: 450 MG, TID
     Route: 048
     Dates: start: 20000623

REACTIONS (6)
  - DUODENOGASTRIC REFLUX [None]
  - GASTRITIS [None]
  - GASTROINTESTINAL PAIN [None]
  - ISCHAEMIA [None]
  - NON-CARDIAC CHEST PAIN [None]
  - SUDDEN DEATH [None]
